FAERS Safety Report 7183068-1 (Version None)
Quarter: 2010Q4

REPORT INFORMATION
  Report Type: 
  Country: None (occurrence: None)
  Receive Date: 20101222
  Receipt Date: 20100224
  Transmission Date: 20110411
  Serious: No
  Sender: FDA-Public Use
  Company Number: A0843922A

PATIENT
  Age: 69 Year
  Sex: Male

DRUGS (1)
  1. RYTHMOL [Suspect]
     Dosage: 225MG UNKNOWN
     Route: 048

REACTIONS (1)
  - HEART RATE IRREGULAR [None]
